FAERS Safety Report 11607193 (Version 6)
Quarter: 2016Q1

REPORT INFORMATION
  Report Type: Spontaneous
  Country: US (occurrence: US)
  Receive Date: 20151007
  Receipt Date: 20160301
  Transmission Date: 20160525
  Serious: No
  Sender: FDA-Public Use
  Company Number: US-PFIZER INC-2015331497

PATIENT
  Age: 63 Year
  Sex: Female

DRUGS (13)
  1. FLUCONAZOLE. [Suspect]
     Active Substance: FLUCONAZOLE
     Dosage: 20 MG, 2X/DAY
     Dates: start: 201506
  2. DILANTIN [Concomitant]
     Active Substance: PHENYTOIN
     Dosage: 400 MG, ALTERNATE DAY
  3. DILANTIN [Concomitant]
     Active Substance: PHENYTOIN
     Dosage: 300 MG, 1X/DAY (TAKE 3 CAPSULES BY MOUTH EVERY NIGHT AT BEDTIME)
     Route: 048
     Dates: start: 20091214
  4. DILANTIN [Concomitant]
     Active Substance: PHENYTOIN
     Dosage: 200 MG, UNK
     Route: 048
  5. FLUCONAZOLE. [Suspect]
     Active Substance: FLUCONAZOLE
     Indication: OESOPHAGEAL CANDIDIASIS
     Dosage: 20 MG, UNK
     Dates: start: 201503
  6. FLUCONAZOLE. [Suspect]
     Active Substance: FLUCONAZOLE
     Dosage: 100 MG, (TAKE 2 TABLETS THE FIRST DAY, THEN 1 TABLET DAILY FOR 21 DAYS)
     Route: 048
     Dates: start: 20150424, end: 20150505
  7. RALOXIFENE. [Concomitant]
     Active Substance: RALOXIFENE
     Dosage: 60 MG, DAILY
     Route: 048
  8. DILANTIN [Concomitant]
     Active Substance: PHENYTOIN
     Dosage: 300 MG, ALTERNATE DAY
     Route: 048
  9. FLUCONAZOLE. [Suspect]
     Active Substance: FLUCONAZOLE
     Dosage: 400 MG, ON THE FIRST DAY
     Route: 048
     Dates: start: 201504
  10. FLUCONAZOLE. [Suspect]
     Active Substance: FLUCONAZOLE
     Dosage: 200 MG, DAILY (100 MG 2 PO QD)
     Route: 048
     Dates: start: 20150914, end: 20151029
  11. FLUCONAZOLE. [Suspect]
     Active Substance: FLUCONAZOLE
     Dosage: 200 MG, DAILY
     Route: 048
     Dates: start: 2015
  12. AMITRIPTYLINE [Concomitant]
     Active Substance: AMITRIPTYLINE
     Dosage: 25 MG, DAILY
     Route: 048
  13. PANTOPRAZOLE [Concomitant]
     Active Substance: PANTOPRAZOLE SODIUM
     Dosage: 40 MG, 2X/DAY
     Route: 048
     Dates: start: 201503

REACTIONS (1)
  - Drug ineffective [Recovered/Resolved]

NARRATIVE: CASE EVENT DATE: 201503
